FAERS Safety Report 5214796-2 (Version None)
Quarter: 2006Q4

REPORT INFORMATION
  Report Type: 
  Country: None (occurrence: None)
  Receive Date: 20061113
  Receipt Date: 20051011
  Transmission Date: 20070319
  Serious: Yes (Other)
  Sender: FDA-Public Use
  Company Number: US-JNJFOC-20051002414

PATIENT

DRUGS (1)
  1. LEVAQUIN [Suspect]
     Indication: BLOOD CULTURE POSITIVE
     Dosage: INTRAVENOUS
     Route: 042
     Dates: start: 20050101

REACTIONS (1)
  - BLOOD CREATININE ABNORMAL [None]
